FAERS Safety Report 11120320 (Version 2)
Quarter: 2015Q2

REPORT INFORMATION
  Report Type: Spontaneous
  Country: US (occurrence: US)
  Receive Date: 20150518
  Receipt Date: 20150521
  Transmission Date: 20150821
  Serious: Yes (Hospitalization, Other)
  Sender: FDA-Public Use
  Company Number: CHPA2015US006319

PATIENT
  Age: 90 Year
  Sex: Female

DRUGS (3)
  1. VOLTAREN [Suspect]
     Active Substance: DICLOFENAC SODIUM
     Indication: ARTHRALGIA
     Dosage: 2 G, QID TO SPINE
     Route: 061
     Dates: start: 20150501
  2. VOLTAREN [Suspect]
     Active Substance: DICLOFENAC SODIUM
     Indication: SPINAL PAIN
     Dosage: 2 G, QD TO HIP
     Route: 061
     Dates: end: 2014
  3. BIOFREEZE//MENTHOL [Concomitant]
     Indication: PAIN
     Route: 065

REACTIONS (7)
  - Therapeutic response unexpected [Unknown]
  - Drug ineffective for unapproved indication [Unknown]
  - Fall [Unknown]
  - Off label use [Unknown]
  - Spinal pain [Not Recovered/Not Resolved]
  - Drug administered at inappropriate site [Unknown]
  - Arthritis [Unknown]

NARRATIVE: CASE EVENT DATE: 20150413
